FAERS Safety Report 9681280 (Version 1)
Quarter: 2013Q4

REPORT INFORMATION
  Report Type: Spontaneous
  Country: US (occurrence: None)
  Receive Date: 20131108
  Receipt Date: 20131108
  Transmission Date: 20140711
  Serious: No
  Sender: FDA-Public Use
  Company Number: None

PATIENT
  Age: 8 Year
  Sex: Male
  Weight: 31.75 kg

DRUGS (2)
  1. SINGULAIR [Suspect]
     Indication: ASTHMA
     Route: 048
  2. SINGULAIR [Suspect]
     Indication: MULTIPLE ALLERGIES
     Route: 048

REACTIONS (7)
  - Nervousness [None]
  - Aggression [None]
  - Somnolence [None]
  - Anxiety [None]
  - Crying [None]
  - Abnormal behaviour [None]
  - Drug dose omission [None]
